FAERS Safety Report 4707094-4 (Version None)
Quarter: 2005Q3

REPORT INFORMATION
  Report Type: 
  Country: None (occurrence: None)
  Receive Date: 20050701
  Receipt Date: 20050510
  Transmission Date: 20060218
  Serious: No
  Sender: FDA-Public Use
  Company Number: 05H-163-0300527-00

PATIENT
  Age: 79 Year
  Sex: Female

DRUGS (1)
  1. TPN ELECTROLYTES IN PLASTIC CONTAINER [Suspect]
     Dosage: 999 ML/H
     Dates: start: 20050503, end: 20050503

REACTIONS (4)
  - DEVICE FAILURE [None]
  - DYSPNOEA [None]
  - INCORRECT DRUG ADMINISTRATION RATE [None]
  - MEDICATION ERROR [None]
